FAERS Safety Report 19572923 (Version 1)
Quarter: 2021Q3

REPORT INFORMATION
  Report Type: Spontaneous
  Country: DE (occurrence: DE)
  Receive Date: 20210716
  Receipt Date: 20210716
  Transmission Date: 20211014
  Serious: Yes (Life-Threatening, Hospitalization, Other)
  Sender: FDA-Public Use
  Company Number: DE-ASTRAZENECA-2021A618710

PATIENT
  Sex: Male

DRUGS (12)
  1. QUETIAPIN RETARD [Suspect]
     Active Substance: QUETIAPINE
     Indication: BIPOLAR DISORDER
     Route: 065
     Dates: start: 20201015, end: 20201019
  2. LITHIUMCARBONAT RETARD [Suspect]
     Active Substance: LITHIUM CARBONATE
     Dosage: EINNAHME SEIT JAHREN
     Dates: end: 20201103
  3. HCT [Concomitant]
     Active Substance: HYDROCHLOROTHIAZIDE
  4. PANTOPRAZOL [Concomitant]
     Active Substance: PANTOPRAZOLE SODIUM
     Dates: start: 20200924, end: 20201103
  5. PREGABALIN. [Concomitant]
     Active Substance: PREGABALIN
     Dates: start: 20200924, end: 20200929
  6. UNACID [Concomitant]
     Dates: end: 20201103
  7. QUETIAPIN RETARD [Suspect]
     Active Substance: QUETIAPINE
     Indication: BIPOLAR DISORDER
     Route: 065
     Dates: start: 20201013, end: 20201014
  8. ZOPICLON [Concomitant]
     Active Substance: ZOPICLONE
     Dates: start: 20200924, end: 20201103
  9. ARIPIPRAZOL [Suspect]
     Active Substance: ARIPIPRAZOLE
     Dates: end: 20201103
  10. MOVICOL [Concomitant]
     Active Substance: POLYETHYLENE GLYCOL 3350\POTASSIUM CHLORIDE\SODIUM BICARBONATE\SODIUM CHLORIDE
     Dates: start: 20200924, end: 20201103
  11. PREGABALIN. [Concomitant]
     Active Substance: PREGABALIN
     Dates: start: 20200930, end: 20201103
  12. TAMSULOSIN [Concomitant]
     Active Substance: TAMSULOSIN
     Dates: start: 20200924, end: 20201103

REACTIONS (1)
  - Neuroleptic malignant syndrome [Recovered/Resolved]

NARRATIVE: CASE EVENT DATE: 20201025
